FAERS Safety Report 8831518 (Version 2)
Quarter: 2012Q4

REPORT INFORMATION
  Report Type: 
  Country: JP (occurrence: JP)
  Receive Date: 20121008
  Receipt Date: 20121127
  Transmission Date: 20130627
  Serious: Yes (Hospitalization)
  Sender: FDA-Public Use
  Company Number: JP-GLAXOSMITHKLINE-B0823774A

PATIENT
  Age: 60 Year
  Sex: Female

DRUGS (2)
  1. LAMICTAL [Suspect]
     Indication: EPILEPSY
     Dosage: 25MG Twice per day
     Route: 048
     Dates: start: 20120730, end: 20120814
  2. EXCEGRAN [Concomitant]
     Dosage: 100MG Twice per day
     Route: 048
     Dates: start: 20120408, end: 20120814

REACTIONS (25)
  - Nephrolithiasis [Unknown]
  - Drug-induced liver injury [Unknown]
  - Ascites [Unknown]
  - Renal impairment [Unknown]
  - Liver disorder [Recovering/Resolving]
  - Rash [Recovering/Resolving]
  - Aspartate aminotransferase increased [Unknown]
  - Alanine aminotransferase increased [Unknown]
  - Blood lactate dehydrogenase increased [Unknown]
  - Blood alkaline phosphatase increased [Unknown]
  - Gamma-glutamyltransferase increased [Unknown]
  - White blood cell count increased [Unknown]
  - C-reactive protein increased [Unknown]
  - Pyrexia [Unknown]
  - Decreased appetite [Unknown]
  - Atelectasis [Unknown]
  - Pleural effusion [Unknown]
  - Computerised tomogram abnormal [Unknown]
  - Renal cyst [Unknown]
  - Blood urea increased [Unknown]
  - Blood creatinine increased [Unknown]
  - Protein total decreased [Unknown]
  - Blood albumin decreased [Unknown]
  - Prothrombin time prolonged [Unknown]
  - Hepatic function abnormal [Unknown]
